FAERS Safety Report 12099116 (Version 1)
Quarter: 2016Q1

REPORT INFORMATION
  Report Type: Spontaneous
  Country: US (occurrence: US)
  Receive Date: 20160222
  Receipt Date: 20160222
  Transmission Date: 20160526
  Serious: No
  Sender: FDA-Public Use
  Company Number: US-TEVA-588427USA

PATIENT
  Sex: Female

DRUGS (2)
  1. CETIRIZINE W/PSEUDOEPHEDRINE [Suspect]
     Active Substance: CETIRIZINE HYDROCHLORIDE\PSEUDOEPHEDRINE HYDROCHLORIDE
     Indication: SINUSITIS
     Dosage: IN THE MORNING; CETIRIZINE 5 MG/PSEUDOEPHEDRINE 120 MG
     Route: 048
     Dates: start: 20150814
  2. CETIRIZINE W/PSEUDOEPHEDRINE [Suspect]
     Active Substance: CETIRIZINE HYDROCHLORIDE\PSEUDOEPHEDRINE HYDROCHLORIDE
     Indication: EAR DISCOMFORT

REACTIONS (3)
  - Tinnitus [Not Recovered/Not Resolved]
  - Off label use [Unknown]
  - Constipation [Not Recovered/Not Resolved]

NARRATIVE: CASE EVENT DATE: 20150815
